FAERS Safety Report 24441682 (Version 2)
Quarter: 2024Q4

REPORT INFORMATION
  Report Type: Report from Study
  Country: CH (occurrence: CH)
  Receive Date: 20241016
  Receipt Date: 20241017
  Transmission Date: 20250115
  Serious: No
  Sender: ROCHE
  Company Number: CH-ROCHE-3505323

PATIENT
  Age: 9 Year
  Sex: Male
  Weight: 31.0 kg

DRUGS (12)
  1. EMICIZUMAB [Suspect]
     Active Substance: EMICIZUMAB
     Indication: Haemophilia A with anti factor VIII
     Dosage: DATE OF LAST DOSE OF EMICIZUMAB: 07/2024
     Route: 058
     Dates: start: 20211206, end: 20211227
  2. EMICIZUMAB [Suspect]
     Active Substance: EMICIZUMAB
     Route: 058
     Dates: start: 20220103
  3. HAEMOCTIN [Concomitant]
     Indication: Factor VIII deficiency
     Route: 042
     Dates: start: 20160723, end: 20211205
  4. HAEMOCTIN [Concomitant]
     Route: 042
     Dates: start: 20230923, end: 20230923
  5. HAEMOCTIN [Concomitant]
     Route: 042
     Dates: start: 20221110, end: 20221110
  6. HAEMOCTIN [Concomitant]
     Route: 042
     Dates: start: 20230829, end: 20230829
  7. HAEMOCTIN [Concomitant]
     Route: 042
     Dates: start: 20230803, end: 20230901
  8. ACETAMINOPHEN [Concomitant]
     Active Substance: ACETAMINOPHEN
     Indication: Viral infection
     Route: 048
     Dates: start: 20220325, end: 20220326
  9. ACETAMINOPHEN [Concomitant]
     Active Substance: ACETAMINOPHEN
     Route: 048
     Dates: start: 20230923, end: 20230923
  10. DESOMEDIN [Concomitant]
     Route: 047
     Dates: start: 20230902, end: 20230924
  11. XYZAL [Concomitant]
     Active Substance: LEVOCETIRIZINE DIHYDROCHLORIDE
     Route: 048
     Dates: start: 20230902, end: 20230923
  12. NASIVINE [Concomitant]
     Route: 045
     Dates: start: 20230902, end: 20230924

REACTIONS (2)
  - Joint injury [Recovered/Resolved]
  - Conjunctivitis [Recovered/Resolved]

NARRATIVE: CASE EVENT DATE: 20230828
